FAERS Safety Report 6715599-X (Version None)
Quarter: 2010Q2

REPORT INFORMATION
  Report Type: 
  Country: None (occurrence: None)
  Receive Date: 20100507
  Receipt Date: 20100428
  Transmission Date: 20101027
  Serious: Yes (Other)
  Sender: FDA-Public Use
  Company Number: PHHY2010CA27443

PATIENT
  Sex: Female

DRUGS (7)
  1. ACLASTA [Suspect]
     Indication: OSTEOPOROSIS
     Dosage: 5 MG/YEAR
     Route: 042
     Dates: start: 20100119
  2. OMEPRAZOLE [Concomitant]
  3. TRAVOPROST [Concomitant]
  4. CALCIUM WITH VITAMIN D [Concomitant]
  5. MULTI-VITAMINS [Concomitant]
  6. WILD SALMON OIL [Concomitant]
  7. ALEVE (CAPLET) [Concomitant]

REACTIONS (2)
  - ABDOMINAL PAIN [None]
  - CYSTITIS [None]
